FAERS Safety Report 8261645-4 (Version None)
Quarter: 2012Q2

REPORT INFORMATION
  Report Type: 
  Country: None (occurrence: None)
  Receive Date: 20120405
  Receipt Date: 20120405
  Transmission Date: 20120825
  Serious: Yes (Hospitalization)
  Sender: FDA-Public Use
  Company Number: None

PATIENT
  Sex: Male
  Weight: 12.7 kg

DRUGS (2)
  1. ABILIFY [Suspect]
     Indication: AFFECTIVE DISORDER
     Dosage: 5MG
     Route: 048
  2. ABILIFY [Suspect]
     Indication: AGGRESSION
     Dosage: 5MG
     Route: 048

REACTIONS (2)
  - PRODUCT CONTAINER SEAL ISSUE [None]
  - ACCIDENTAL DRUG INTAKE BY CHILD [None]
